FAERS Safety Report 10921363 (Version 1)
Quarter: 2015Q1

REPORT INFORMATION
  Report Type: Spontaneous
  Country: US (occurrence: None)
  Receive Date: 20150313
  Receipt Date: 20150313
  Transmission Date: 20150721
  Serious: Yes (Death)
  Sender: FDA-Public Use
  Company Number: None

PATIENT
  Age: 63 Year
  Sex: Male

DRUGS (7)
  1. LETAIRIS [Concomitant]
     Active Substance: AMBRISENTAN
  2. LETAIRIS [Suspect]
     Active Substance: AMBRISENTAN
     Indication: PULMONARY ARTERIAL HYPERTENSION
     Route: 048
     Dates: start: 20120703, end: 20150303
  3. RISPERIDONE. [Concomitant]
     Active Substance: RISPERIDONE
  4. PANTOPRAZOLE [Concomitant]
     Active Substance: PANTOPRAZOLE SODIUM
  5. SILDENAFIL. [Concomitant]
     Active Substance: SILDENAFIL
  6. OLANZAPINE. [Concomitant]
     Active Substance: OLANZAPINE
  7. LACTULOSE. [Concomitant]
     Active Substance: LACTULOSE

REACTIONS (4)
  - Pneumonia [None]
  - Altered state of consciousness [None]
  - Hepatic encephalopathy [None]
  - Hypoxia [None]

NARRATIVE: CASE EVENT DATE: 20150303
